FAERS Safety Report 11181117 (Version 1)
Quarter: 2015Q2

REPORT INFORMATION
  Report Type: Spontaneous
  Country: US (occurrence: None)
  Receive Date: 20150610
  Receipt Date: 20150610
  Transmission Date: 20150821
  Serious: No
  Sender: FDA-Public Use
  Company Number: None

PATIENT
  Age: 26 Year
  Sex: Female
  Weight: 79.38 kg

DRUGS (4)
  1. METRONIDAZOLE 500 MG TEVA [Suspect]
     Active Substance: METRONIDAZOLE
     Indication: URINARY TRACT INFECTION
     Dosage: 1 PILL
     Route: 048
     Dates: start: 20150520, end: 20150521
  2. BUPROPION SR [Concomitant]
     Active Substance: BUPROPION
  3. FLUCONAZOLE. [Concomitant]
     Active Substance: FLUCONAZOLE
  4. AMITRYPTYLINE ACCORD [Concomitant]
     Active Substance: AMITRIPTYLINE

REACTIONS (1)
  - Confusional state [None]

NARRATIVE: CASE EVENT DATE: 20150521
